FAERS Safety Report 8242741-4 (Version None)
Quarter: 2012Q1

REPORT INFORMATION
  Report Type: 
  Country: None (occurrence: None)
  Receive Date: 20120329
  Receipt Date: 20120319
  Transmission Date: 20120608
  Serious: Yes (Other)
  Sender: FDA-Public Use
  Company Number: IT-BRISTOL-MYERS SQUIBB COMPANY-16465890

PATIENT
  Age: 63 Year
  Sex: Female

DRUGS (1)
  1. IPILIMUMAB [Suspect]
     Indication: MALIGNANT MELANOMA
     Dosage: VIAL NUMBERS:263417,263421,212616,212617,341122,341123,342051,342052
     Dates: start: 20110518, end: 20110721

REACTIONS (1)
  - BONE MARROW FAILURE [None]
